FAERS Safety Report 4354842-1 (Version None)
Quarter: 2004Q2

REPORT INFORMATION
  Report Type: 
  Country: None (occurrence: None)
  Receive Date: 20040507
  Receipt Date: 20040308
  Transmission Date: 20050107
  Serious: Yes (Other)
  Sender: FDA-Public Use
  Company Number: FR-GLAXOSMITHKLINE-B0326019A

PATIENT
  Age: 46 Year
  Sex: Female
  Weight: 48 kg

DRUGS (1)
  1. ZYBAN [Suspect]
     Dosage: 150MG VARIABLE DOSE
     Route: 048
     Dates: start: 20030625, end: 20030725

REACTIONS (8)
  - ASTHENIA [None]
  - BLOOD CREATINE INCREASED [None]
  - BLOOD IRON DECREASED [None]
  - HAEMOGLOBIN S DECREASED [None]
  - HYPERCHOLESTEROLAEMIA [None]
  - IRON DEFICIENCY ANAEMIA [None]
  - PRURITUS GENERALISED [None]
  - RENAL FAILURE [None]
